FAERS Safety Report 16872330 (Version 5)
Quarter: 2019Q4

REPORT INFORMATION
  Report Type: Report from Study
  Country: BE (occurrence: BE)
  Receive Date: 20191001
  Receipt Date: 20191108
  Transmission Date: 20200122
  Serious: Yes (Death, Hospitalization)
  Sender: FDA-Public Use
  Company Number: BE-ROCHE-2415213

PATIENT
  Age: 72 Year
  Sex: Female
  Weight: 63 kg

DRUGS (2)
  1. PIRFENIDONE. [Suspect]
     Active Substance: PIRFENIDONE
     Indication: IDIOPATHIC PULMONARY FIBROSIS
     Dosage: 6 PER DAY
     Route: 048
     Dates: start: 20190710
  2. PIRFENIDONE. [Suspect]
     Active Substance: PIRFENIDONE
     Dosage: 6 PER DAY
     Route: 048
     Dates: start: 20190912, end: 20191014

REACTIONS (3)
  - Dyspnoea [Fatal]
  - Neoplasm [Recovered/Resolved]
  - Syncope [Recovered/Resolved]

NARRATIVE: CASE EVENT DATE: 20190829
